FAERS Safety Report 11363245 (Version 2)
Quarter: 2015Q3

REPORT INFORMATION
  Report Type: Spontaneous
  Country: IT (occurrence: IT)
  Receive Date: 20150811
  Receipt Date: 20150814
  Transmission Date: 20151125
  Serious: Yes (Hospitalization)
  Sender: FDA-Public Use
  Company Number: IT-ROCHE-1618787

PATIENT
  Age: 51 Year
  Sex: Female

DRUGS (2)
  1. ENTUMIN [Suspect]
     Active Substance: CLOTHIAPINE
     Indication: INTENTIONAL SELF-INJURY
     Dosage: 100 MG/ML ORAL DROPS, SOLUTION 10 ML BOTTLE
     Route: 048
     Dates: start: 20150719, end: 20150719
  2. DIAZEPAM. [Suspect]
     Active Substance: DIAZEPAM
     Indication: INTENTIONAL SELF-INJURY
     Route: 048
     Dates: start: 20150719, end: 20150719

REACTIONS (4)
  - Sopor [Unknown]
  - Drug abuse [Unknown]
  - Speech disorder [Unknown]
  - Bradyphrenia [Unknown]

NARRATIVE: CASE EVENT DATE: 20150719
